FAERS Safety Report 23341586 (Version 2)
Quarter: 2024Q1

REPORT INFORMATION
  Report Type: Spontaneous
  Country: IT (occurrence: IT)
  Receive Date: 20231227
  Receipt Date: 20240105
  Transmission Date: 20240410
  Serious: Yes (Other)
  Sender: FDA-Public Use
  Company Number: IT-GSK-IT2023177678

PATIENT

DRUGS (1)
  1. BENLYSTA [Suspect]
     Active Substance: BELIMUMAB
     Indication: Lupus nephritis
     Dosage: UNK
     Route: 058

REACTIONS (3)
  - Chronic kidney disease [Not Recovered/Not Resolved]
  - Haemodialysis [Unknown]
  - Glomerular filtration rate decreased [Not Recovered/Not Resolved]
